FAERS Safety Report 18570492 (Version 1)
Quarter: 2020Q4

REPORT INFORMATION
  Report Type: Report from Study
  Country: TN (occurrence: TN)
  Receive Date: 20201202
  Receipt Date: 20201202
  Transmission Date: 20210114
  Serious: Yes (Other)
  Sender: FDA-Public Use
  Company Number: TN-EMD SERONO-9085350

PATIENT
  Age: 31 Year
  Sex: Female

DRUGS (6)
  1. VITAMIN B [Suspect]
     Active Substance: VITAMIN B
     Indication: PREGNANCY
  2. REBIF [Suspect]
     Active Substance: INTERFERON BETA-1A
     Route: 058
     Dates: start: 2017, end: 2017
  3. IRON [Suspect]
     Active Substance: IRON
     Indication: PREGNANCY
  4. REBIF [Suspect]
     Active Substance: INTERFERON BETA-1A
     Indication: MULTIPLE SCLEROSIS
     Dosage: CARTRIDGES
     Route: 058
     Dates: start: 20121029, end: 2013
  5. REBIF [Suspect]
     Active Substance: INTERFERON BETA-1A
     Route: 058
     Dates: start: 201810, end: 201904
  6. TARDYFERON [Concomitant]
     Active Substance: FERROUS SULFATE
     Indication: PRODUCT USED FOR UNKNOWN INDICATION

REACTIONS (5)
  - Constipation [Unknown]
  - Maternal exposure during pregnancy [Recovered/Resolved]
  - Normal newborn [Recovered/Resolved]
  - Caesarean section [Recovered/Resolved]
  - Magnetic resonance imaging abnormal [Recovering/Resolving]

NARRATIVE: CASE EVENT DATE: 201901
